FAERS Safety Report 6844314-4 (Version None)
Quarter: 2010Q3

REPORT INFORMATION
  Report Type: 
  Country: None (occurrence: None)
  Receive Date: 20100715
  Receipt Date: 20100709
  Transmission Date: 20110219
  Serious: Yes (Life-Threatening)
  Sender: FDA-Public Use
  Company Number: JP-ROCHE-714906

PATIENT
  Age: 31 Year
  Sex: Female

DRUGS (8)
  1. HERCEPTIN [Suspect]
     Indication: BREAST CANCER RECURRENT
     Dosage: ADJUVANT THERAPY.
     Route: 041
  2. XELODA [Suspect]
     Indication: BREAST CANCER RECURRENT
     Dosage: DOSAGE IS UNCERTAIN.
     Route: 048
  3. MEDROXIPROGESTERONE ACETATE [Suspect]
     Indication: BREAST CANCER RECURRENT
     Route: 048
  4. ZOMETA [Suspect]
     Indication: METASTASES TO BONE
     Dosage: DOSAGE IS UNCERTAIN.
     Route: 041
  5. FLUOROURACIL [Concomitant]
     Indication: BREAST CANCER RECURRENT
     Dosage: DOSAGE IS UNCERTAIN.
     Route: 041
  6. EPIRUBICIN HYDROCHLORIDE [Concomitant]
     Dosage: DOSAGE IS UNCERTAIN.
     Route: 042
  7. CYCLOPHOSPHAMIDE [Concomitant]
     Dosage: DOSAGE IS UNCERTAIN.
  8. PACLITAXEL [Concomitant]
     Dosage: DOSAGE IS UNCERTAIN.
     Route: 041

REACTIONS (1)
  - ATRIAL FIBRILLATION [None]
